FAERS Safety Report 24991337 (Version 1)
Quarter: 2025Q1

REPORT INFORMATION
  Report Type: Report from Study
  Country: US (occurrence: US)
  Receive Date: 20250220
  Receipt Date: 20250220
  Transmission Date: 20250408
  Serious: Yes (Other)
  Sender: ABBVIE
  Company Number: US-ABBVIE-6130328

PATIENT
  Sex: Female

DRUGS (1)
  1. RESTASIS [Suspect]
     Active Substance: CYCLOSPORINE
     Indication: Dry eye
     Route: 047

REACTIONS (6)
  - Coronary artery occlusion [Unknown]
  - Unevaluable event [Unknown]
  - Peripheral artery occlusion [Unknown]
  - Product preparation error [Not Recovered/Not Resolved]
  - Obstructive airways disorder [Unknown]
  - Poor quality product administered [Not Recovered/Not Resolved]
